FAERS Safety Report 9592898 (Version 1)
Quarter: 2013Q4

REPORT INFORMATION
  Report Type: Spontaneous
  Country: ES (occurrence: ES)
  Receive Date: 20131004
  Receipt Date: 20131004
  Transmission Date: 20140711
  Serious: Yes (Hospitalization)
  Sender: FDA-Public Use
  Company Number: PHHY2013ES110567

PATIENT
  Age: 78 Year
  Sex: Male

DRUGS (1)
  1. VOLTAREN RETARD [Suspect]
     Indication: ARTHROPATHY
     Dosage: 100 MG, QD
     Route: 048
     Dates: start: 19960201, end: 19960219

REACTIONS (5)
  - Deficiency of bile secretion [Recovered/Resolved]
  - Asthenia [Recovered/Resolved]
  - Hepatitis [Recovered/Resolved]
  - Jaundice [Recovered/Resolved]
  - Decreased appetite [Recovered/Resolved]
